FAERS Safety Report 4814965-7 (Version None)
Quarter: 2005Q4

REPORT INFORMATION
  Report Type: 
  Country: None (occurrence: None)
  Receive Date: 20051028
  Receipt Date: 20051019
  Transmission Date: 20060501
  Serious: Yes (Other)
  Sender: FDA-Public Use
  Company Number: GB-JNJFOC-20051004051

PATIENT
  Age: 12 Year
  Sex: Male
  Weight: 28 kg

DRUGS (2)
  1. CONCERTA [Suspect]
     Route: 065
  2. STRATTERA [Concomitant]
     Dosage: REPORTED AS 'SIMILAR DOSE' TO METHYLPHENIDATE (18MG)

REACTIONS (2)
  - HALLUCINATION, AUDITORY [None]
  - PARANOIA [None]
